FAERS Safety Report 18592756 (Version 2)
Quarter: 2021Q1

REPORT INFORMATION
  Report Type: Spontaneous
  Country: US (occurrence: US)
  Receive Date: 20201209
  Receipt Date: 20210312
  Transmission Date: 20210419
  Serious: Yes (Other)
  Sender: FDA-Public Use
  Company Number: US-SUN PHARMACEUTICAL INDUSTRIES LTD-2020R1-270309

PATIENT
  Sex: Female
  Weight: 3.54 kg

DRUGS (4)
  1. VANCOMYCIN HYDROCHLORIDE. [Suspect]
     Active Substance: VANCOMYCIN HYDROCHLORIDE
     Indication: ARTHRITIS BACTERIAL
     Dosage: 1000 MILLIGRAM, BID (EVERY 12 HOURS)
     Route: 042
  2. BUPRENORPHINE. [Suspect]
     Active Substance: BUPRENORPHINE
     Indication: DRUG DEPENDENCE
     Dosage: UNK
     Route: 065
  3. CEFEPIME [Suspect]
     Active Substance: CEFEPIME HYDROCHLORIDE
     Indication: ARTHRITIS BACTERIAL
     Dosage: 2 GRAM,EVERY 8 HOURS
     Route: 042
  4. CEFAZOLIN [Suspect]
     Active Substance: CEFAZOLIN
     Indication: STAPHYLOCOCCAL BACTERAEMIA
     Dosage: 2 GRAM, QID (EVERY 8 HOURS)
     Route: 042

REACTIONS (3)
  - Drug withdrawal syndrome neonatal [Recovered/Resolved]
  - Respiratory distress [Recovered/Resolved]
  - Foetal exposure during pregnancy [Unknown]
